FAERS Safety Report 13349906 (Version 2)
Quarter: 2017Q2

REPORT INFORMATION
  Report Type: Report from Study
  Country: US (occurrence: US)
  Receive Date: 20170320
  Receipt Date: 20170508
  Transmission Date: 20170830
  Serious: Yes (Hospitalization)
  Sender: FDA-Public Use
  Company Number: US-UCBSA-2017010035

PATIENT
  Age: 48 Year
  Sex: Male

DRUGS (1)
  1. LEVETIRACETAM. [Suspect]
     Active Substance: LEVETIRACETAM
     Indication: CONVULSION PROPHYLAXIS
     Dosage: 500 MG, 2X/DAY (BID)
     Route: 048
     Dates: start: 201604

REACTIONS (2)
  - Intentional product misuse [Unknown]
  - Bone operation [Recovered/Resolved]

NARRATIVE: CASE EVENT DATE: 201604
